FAERS Safety Report 9333210 (Version 1)
Quarter: 2013Q2

REPORT INFORMATION
  Report Type: Spontaneous
  Country: US (occurrence: US)
  Receive Date: 20130606
  Receipt Date: 20130606
  Transmission Date: 20140414
  Serious: Yes (Other)
  Sender: FDA-Public Use
  Company Number: US-ABBOTT-13P-163-1097880-00

PATIENT
  Age: 50 Year
  Sex: Female
  Weight: 66.74 kg

DRUGS (8)
  1. HUMIRA [Suspect]
     Indication: PSORIASIS
     Route: 058
     Dates: start: 201202, end: 201304
  2. HUMIRA [Suspect]
     Route: 058
     Dates: start: 20130517
  3. TRAMADOL [Suspect]
     Indication: PAIN
     Dates: start: 201304, end: 20130530
  4. REGLAN [Concomitant]
     Indication: VOMITING
  5. REGLAN [Concomitant]
     Indication: PROPHYLAXIS
  6. NEXIUM [Concomitant]
     Indication: GASTROOESOPHAGEAL REFLUX DISEASE
  7. NEURONTIN [Concomitant]
     Indication: PRODUCT USED FOR UNKNOWN INDICATION
  8. SIMVASTATIN [Concomitant]
     Indication: BLOOD CHOLESTEROL INCREASED

REACTIONS (8)
  - Bone development abnormal [Recovering/Resolving]
  - Fall [Recovered/Resolved]
  - Wrist fracture [Recovering/Resolving]
  - Arthralgia [Recovering/Resolving]
  - Dizziness [Recovered/Resolved]
  - Psoriasis [Not Recovered/Not Resolved]
  - Skin discolouration [Recovered/Resolved]
  - Gait disturbance [Not Recovered/Not Resolved]
